FAERS Safety Report 5699249-X (Version None)
Quarter: 2008Q2

REPORT INFORMATION
  Report Type: 
  Country: None (occurrence: None)
  Receive Date: 20080407
  Receipt Date: 20080407
  Transmission Date: 20081010
  Serious: Yes (Other)
  Sender: FDA-Public Use
  Company Number: None

PATIENT
  Age: 14 Year
  Sex: Female
  Weight: 56.246 kg

DRUGS (1)
  1. SINGULAIR [Suspect]
     Indication: COUGH
     Dosage: 10 MG ONCE A DAY BUCCAL
     Route: 002
     Dates: start: 20080130, end: 20080227

REACTIONS (5)
  - ABNORMAL BEHAVIOUR [None]
  - AGGRESSION [None]
  - DISTURBANCE IN ATTENTION [None]
  - MEMORY IMPAIRMENT [None]
  - MOOD ALTERED [None]
